FAERS Safety Report 8957499 (Version 1)
Quarter: 2012Q4

REPORT INFORMATION
  Report Type: Spontaneous
  Country: ES (occurrence: None)
  Receive Date: 20121130
  Receipt Date: 20121130
  Transmission Date: 20130627
  Serious: Yes (Disabling, Other)
  Sender: FDA-Public Use
  Company Number: 2012P1065379

PATIENT
  Age: 44 Year
  Sex: Female

DRUGS (4)
  1. DEXAMETHASONE [Suspect]
     Indication: PROPHYLAXIS OF NAUSEA AND VOMITING
     Route: 042
  2. 5 FLUOROURACIL [Concomitant]
  3. EPIRUBICIN [Concomitant]
  4. CYCLOPHOSPHAMIDE [Concomitant]

REACTIONS (7)
  - Vision blurred [None]
  - Colour blindness acquired [None]
  - Toxic optic neuropathy [None]
  - Scotoma [None]
  - Retinal detachment [None]
  - Detachment of retinal pigment epithelium [None]
  - Chorioretinopathy [None]
